FAERS Safety Report 8571155-2 (Version None)
Quarter: 2012Q3

REPORT INFORMATION
  Report Type: 
  Country: None (occurrence: None)
  Receive Date: 20120806
  Receipt Date: 20120802
  Transmission Date: 20120928
  Serious: No
  Sender: FDA-Public Use
  Company Number: US-PFIZER INC-2012188885

PATIENT
  Age: 22 Year
  Sex: Female

DRUGS (5)
  1. TRILEPTAL [Suspect]
     Indication: BIPOLAR DISORDER
     Dosage: UNK
     Dates: start: 20120730
  2. PRISTIQ [Suspect]
     Indication: ATTENTION DEFICIT/HYPERACTIVITY DISORDER
     Dosage: 100 MG, DAILY
     Route: 048
     Dates: start: 20120730
  3. AMBIEN [Suspect]
     Indication: SLEEP DISORDER
     Dosage: 5 MG, UNK
     Route: 048
     Dates: start: 20120730
  4. PRISTIQ [Suspect]
     Indication: DEPRESSION
     Dosage: 100 MG, DAILY
     Route: 048
  5. PRISTIQ [Suspect]
     Indication: BIPOLAR DISORDER

REACTIONS (2)
  - NAUSEA [None]
  - VOMITING [None]
